FAERS Safety Report 14103002 (Version 1)
Quarter: 2017Q4

REPORT INFORMATION
  Report Type: Spontaneous
  Country: BR (occurrence: BR)
  Receive Date: 20171018
  Receipt Date: 20171018
  Transmission Date: 20180321
  Serious: Yes (Other)
  Sender: FDA-Public Use
  Company Number: PHHY2017BR150442

PATIENT
  Age: 41 Year
  Sex: Female

DRUGS (5)
  1. SECUKINUMAB. [Suspect]
     Active Substance: SECUKINUMAB
     Indication: RHEUMATOID ARTHRITIS
     Route: 065
  2. METHOTREXATE. [Concomitant]
     Active Substance: METHOTREXATE
     Indication: RHEUMATOID ARTHRITIS
     Route: 065
  3. PARACETAMOL [Concomitant]
     Active Substance: ACETAMINOPHEN
     Indication: RHEUMATOID ARTHRITIS
     Dosage: AS NEEDED
     Route: 065
  4. PREDNISOLONE. [Concomitant]
     Active Substance: PREDNISOLONE
     Indication: RHEUMATOID ARTHRITIS
     Dosage: 5 MG, QD
     Route: 065
  5. METHOTREXATE. [Concomitant]
     Active Substance: METHOTREXATE
     Dosage: DOSE INCREASED
     Route: 065

REACTIONS (5)
  - Pruritus [Recovering/Resolving]
  - Erythema [Recovering/Resolving]
  - Product use in unapproved indication [Unknown]
  - Skin exfoliation [Recovering/Resolving]
  - Pemphigus [Recovering/Resolving]
